FAERS Safety Report 4273001-4 (Version None)
Quarter: 2004Q1

REPORT INFORMATION
  Report Type: 
  Country: None (occurrence: None)
  Receive Date: 20040114
  Receipt Date: 20040106
  Transmission Date: 20041129
  Serious: Yes (Other)
  Sender: FDA-Public Use
  Company Number: 2004192966FR

PATIENT
  Age: 69 Year
  Sex: Male

DRUGS (5)
  1. TRELSTAR LA 11.25 MG (TRIPTORELIN PAMOATE) POWDER, STERILE, 11.25 MG [Suspect]
     Indication: PROSTATE CANCER
     Dosage: 11.25 MG/3 MONTHS, INTRAMUSCULAR
     Route: 030
     Dates: start: 20020601, end: 20020301
  2. TRELSTAR LA 11.25 MG (TRIPTORELIN PAMOATE) POWDER, STERILE, 11.25 MG [Suspect]
     Indication: PROSTATE CANCER
     Dosage: 11.25 MG/3 MONTHS, INTRAMUSCULAR
     Route: 030
     Dates: start: 20031001
  3. ZOCOR [Concomitant]
  4. COMBIVENT [Concomitant]
  5. SERETIDE MITE (FLUCICASONE PROPIONATE) [Concomitant]

REACTIONS (2)
  - HOT FLUSH [None]
  - HYPERHIDROSIS [None]
